FAERS Safety Report 16895311 (Version 3)
Quarter: 2020Q3

REPORT INFORMATION
  Report Type: Report from Study
  Country: KR (occurrence: KR)
  Receive Date: 20191008
  Receipt Date: 20200810
  Transmission Date: 20201102
  Serious: Yes (Death, Life-Threatening, Hospitalization, Other)
  Sender: FDA-Public Use
  Company Number: KR-ACTELION-A-CH2019-196342

PATIENT
  Age: 62 Year
  Sex: Male

DRUGS (127)
  1. GASTER [Concomitant]
     Active Substance: FAMOTIDINE
     Dosage: 40 MG, QD
     Route: 048
     Dates: start: 20150521, end: 20170408
  2. NEXIUM [Concomitant]
     Active Substance: ESOMEPRAZOLE MAGNESIUM
     Dosage: 40 MG, QD
     Route: 042
     Dates: start: 20170602, end: 20170617
  3. NEXIUM [Concomitant]
     Active Substance: ESOMEPRAZOLE MAGNESIUM
     Dosage: 40 MG, QD
     Route: 042
     Dates: start: 20170602, end: 20170617
  4. DUPHALAC EASY [Concomitant]
     Active Substance: LACTULOSE
     Dosage: 30 ML, QD
     Route: 048
     Dates: start: 20161128, end: 20170319
  5. NOVORAPID [Concomitant]
     Active Substance: INSULIN ASPART
     Dosage: 5 IU, QD
     Route: 058
     Dates: start: 20170419, end: 20170602
  6. CELLCEPT [Concomitant]
     Active Substance: MYCOPHENOLATE MOFETIL\MYCOPHENOLATE MOFETIL HYDROCHLORIDE
     Dosage: 1000 MG
     Route: 048
     Dates: start: 20170410, end: 20170410
  7. PROGRAF [Concomitant]
     Active Substance: TACROLIMUS
     Dosage: 0.02 MG/HR, QD
     Route: 042
     Dates: start: 20170409, end: 20170410
  8. FENTANYL. [Concomitant]
     Active Substance: FENTANYL
     Dosage: 50 MCG, QD
     Route: 042
     Dates: start: 20170417, end: 20170417
  9. SEPTRIN [Concomitant]
     Active Substance: SULFAMETHOXAZOLE\TRIMETHOPRIM
     Dosage: 0.5 DF, QD
     Route: 048
     Dates: start: 20170413, end: 20170413
  10. HUMULIN R [Concomitant]
     Active Substance: INSULIN HUMAN
     Dosage: 10 IU
     Route: 058
     Dates: start: 20170506, end: 20170507
  11. CALCIUM GLUCONATE. [Concomitant]
     Active Substance: CALCIUM GLUCONATE
     Dosage: 2 G, QD
     Route: 042
     Dates: start: 20170410, end: 20170410
  12. CALCIUM GLUCONATE. [Concomitant]
     Active Substance: CALCIUM GLUCONATE
     Dosage: 20 ML, QD
     Route: 042
     Dates: start: 20170531, end: 20170531
  13. OLIMEL [Concomitant]
     Active Substance: AMINO ACIDS\DEXTROSE\SOYBEAN OIL
     Dosage: 1000 ML, QD
     Route: 042
     Dates: start: 20170510, end: 20170513
  14. PHOSTEN [Concomitant]
     Dosage: 20 ML, QD
     Route: 042
     Dates: start: 20170602, end: 20170603
  15. ZYTRAM [Suspect]
     Active Substance: TRAMADOL HYDROCHLORIDE
     Indication: RESPIRATORY DEPRESSION
     Route: 065
  16. LASIX [Concomitant]
     Active Substance: FUROSEMIDE
     Dosage: 10 MG/HR, QD
     Route: 042
     Dates: start: 20170614, end: 20170617
  17. SOLONDO [Concomitant]
     Active Substance: PREDNISOLONE
     Dosage: 2.5 MG, QD
     Route: 048
     Dates: start: 20141113, end: 20170408
  18. DISOLRIN [Concomitant]
     Dosage: 15 MG, QD
     Route: 042
     Dates: start: 20170529, end: 20170611
  19. SPORANOX [Concomitant]
     Active Substance: ITRACONAZOLE
     Dosage: 30 UNK
     Route: 048
     Dates: start: 20170415, end: 20170623
  20. ATIVAN [Concomitant]
     Active Substance: LORAZEPAM
     Dosage: 4 MG, QD
     Route: 042
     Dates: start: 20170410, end: 20170410
  21. TACROBELL [Concomitant]
     Active Substance: TACROLIMUS
     Dosage: 2.5 DF, QD
     Route: 048
     Dates: start: 20170519, end: 20170528
  22. TACROBELL [Concomitant]
     Active Substance: TACROLIMUS
     Dosage: 2 DF, QD
     Route: 048
     Dates: start: 20170529, end: 20170605
  23. ALBUMIN [Concomitant]
     Active Substance: ALBUMIN HUMAN
     Dosage: 250 ML, QD
     Route: 042
     Dates: start: 20170424, end: 20170424
  24. ALBUMIN [Concomitant]
     Active Substance: ALBUMIN HUMAN
     Dosage: 100 ML, QD
     Route: 042
     Dates: start: 20170520, end: 20170520
  25. MAGNESIUM [Concomitant]
     Active Substance: MAGNESIUM
     Dosage: 2 G, QD
     Route: 042
     Dates: start: 20170512, end: 20170514
  26. MAGNESIUM [Concomitant]
     Active Substance: MAGNESIUM
     Dosage: 2 G, QD
     Route: 042
     Dates: start: 20170520, end: 20170520
  27. MAGNESIUM [Concomitant]
     Active Substance: MAGNESIUM
     Dosage: 2 G, QD
     Route: 042
     Dates: start: 20170613, end: 20170614
  28. TAMIPOOL [Concomitant]
     Active Substance: VITAMINS
     Dosage: 1 DF, QD
     Route: 042
     Dates: start: 20170510, end: 20170513
  29. SEROQUEL [Suspect]
     Active Substance: QUETIAPINE FUMARATE
     Indication: PRODUCT USED FOR UNKNOWN INDICATION
     Route: 065
  30. LASIX [Concomitant]
     Active Substance: FUROSEMIDE
     Dosage: 20 MG, QD
     Route: 042
     Dates: start: 20170507, end: 20170509
  31. ZITHROMAX [Concomitant]
     Active Substance: AZITHROMYCIN DIHYDRATE
     Dosage: 500 MG
     Route: 048
     Dates: start: 20160404, end: 20170319
  32. TAMBUTOL [Concomitant]
     Dosage: 800 MG, QD
     Route: 048
     Dates: start: 20150820, end: 20170319
  33. SYNTHYROXINE [Concomitant]
     Active Substance: LEVOTHYROXINE SODIUM
     Dosage: 25 MCG, QD
     Route: 048
     Dates: start: 20161212, end: 20170319
  34. CAVID [Concomitant]
     Dosage: 200 MG, QD
     Route: 048
     Dates: start: 20160919, end: 20170409
  35. KALIMATE [Concomitant]
     Active Substance: CALCIUM POLYSTYRENE SULFONATE
     Dosage: 10 G, QD
     Route: 048
     Dates: start: 20170409, end: 20170410
  36. KALIMATE [Concomitant]
     Active Substance: CALCIUM POLYSTYRENE SULFONATE
     Dosage: 6 SACHET
     Route: 048
     Dates: start: 20170415, end: 20170520
  37. FENTANYL. [Concomitant]
     Active Substance: FENTANYL
     Dosage: 50 MCG, QD
     Route: 042
     Dates: start: 20170409, end: 20170409
  38. SEPTRIN [Concomitant]
     Active Substance: SULFAMETHOXAZOLE\TRIMETHOPRIM
     Dosage: 3 DF, QD
     Route: 048
     Dates: start: 20170429, end: 20170430
  39. SEPTRIN [Concomitant]
     Active Substance: SULFAMETHOXAZOLE\TRIMETHOPRIM
     Dosage: 1 DF, QD
     Route: 048
     Dates: start: 20170508
  40. HUMULIN R [Concomitant]
     Active Substance: INSULIN HUMAN
     Dosage: 4 IU, QD
     Route: 042
     Dates: start: 20170410, end: 20170420
  41. ALBUMIN [Concomitant]
     Active Substance: ALBUMIN HUMAN
     Dosage: 100 ML, QD
     Route: 042
     Dates: start: 20170509, end: 20170509
  42. ALBUMIN [Concomitant]
     Active Substance: ALBUMIN HUMAN
     Dosage: 100 ML, QD
     Route: 042
     Dates: start: 20170531, end: 20170531
  43. ALBUMIN [Concomitant]
     Active Substance: ALBUMIN HUMAN
     Dosage: 250 ML, QD
     Route: 042
     Dates: start: 20170611, end: 20170611
  44. VALCYTE [Concomitant]
     Active Substance: VALGANCICLOVIR HYDROCHLORIDE
     Dosage: 2 DF, QD
     Route: 048
     Dates: start: 20170615, end: 20170615
  45. DICHLOZID [Concomitant]
     Dosage: 25 MG, QD
     Route: 048
     Dates: start: 20150402, end: 20170408
  46. LASIX [Concomitant]
     Active Substance: FUROSEMIDE
     Dosage: 20 MG, QD
     Route: 042
     Dates: start: 20170515, end: 20170515
  47. PENIRAMIN [Concomitant]
     Dosage: 4 MG, QD
     Route: 048
     Dates: start: 20140310, end: 20170408
  48. PHAZYME [Concomitant]
     Active Substance: DIMETHICONE 410
     Dosage: 3 DF, QD
     Route: 048
     Dates: start: 20170320, end: 20170408
  49. NORPIN [Concomitant]
     Dosage: 0.05 ?G/KG, PER MIN
     Route: 042
     Dates: start: 20170409, end: 20170415
  50. DOBUTAMINE HCL [Concomitant]
     Active Substance: DOBUTAMINE HYDROCHLORIDE
     Dosage: 5 ?G/KG, QD
     Route: 042
     Dates: start: 20170409, end: 20170413
  51. MAXIPIME [Concomitant]
     Active Substance: CEFEPIME HYDROCHLORIDE
     Dosage: 4 G, QD
     Route: 042
     Dates: start: 20170409, end: 20170415
  52. SEPTRIN [Concomitant]
     Active Substance: SULFAMETHOXAZOLE\TRIMETHOPRIM
     Dosage: 2 DF, QD
     Route: 048
     Dates: start: 20170410, end: 20170410
  53. HUMULIN R [Concomitant]
     Active Substance: INSULIN HUMAN
     Dosage: 10 IU
     Route: 058
     Dates: start: 20170424, end: 20170428
  54. CALCIUM GLUCONATE. [Concomitant]
     Active Substance: CALCIUM GLUCONATE
     Dosage: 20 ML, QD
     Route: 042
     Dates: start: 20170525, end: 20170525
  55. LANTUS [Concomitant]
     Active Substance: INSULIN GLARGINE
     Dosage: 25 IU, QD
     Route: 058
     Dates: start: 20170419, end: 20170602
  56. TACROBELL [Concomitant]
     Active Substance: TACROLIMUS
     Dosage: 2 DF
     Route: 048
     Dates: start: 20170424, end: 20170428
  57. TACROBELL [Concomitant]
     Active Substance: TACROLIMUS
     Dosage: 2 DF, QD
     Route: 048
     Dates: start: 20170515, end: 20170518
  58. TACROBELL [Concomitant]
     Active Substance: TACROLIMUS
     Dosage: 1.5 MG, QD
     Route: 048
     Dates: start: 20170607, end: 20170621
  59. MAGNESIUM [Concomitant]
     Active Substance: MAGNESIUM
     Dosage: 2 G, QD
     Route: 042
     Dates: start: 20170517, end: 20170518
  60. ZYPREXA [Suspect]
     Active Substance: OLANZAPINE
     Indication: RESPIRATORY DEPRESSION
     Dosage: 2 DF, QD
     Route: 065
     Dates: start: 20170504
  61. LASIX [Concomitant]
     Active Substance: FUROSEMIDE
     Dosage: 20 MG, QD
     Route: 042
     Dates: start: 20170512, end: 20170512
  62. NEXIUM [Concomitant]
     Active Substance: ESOMEPRAZOLE MAGNESIUM
     Dosage: 40 MG, QD
     Route: 048
     Dates: start: 20170123, end: 20170408
  63. NEXIUM [Concomitant]
     Active Substance: ESOMEPRAZOLE MAGNESIUM
     Dosage: 40 MG, QD
     Route: 042
     Dates: start: 20170514, end: 20170515
  64. GASMOTIN [Concomitant]
     Active Substance: MOSAPRIDE CITRATE
     Dosage: 15 MG, QD
     Route: 048
     Dates: start: 20140224, end: 20170408
  65. DUROC [Concomitant]
     Dosage: 200 MG, QD
     Route: 048
     Dates: start: 20160919, end: 20170409
  66. NOVORAPID [Concomitant]
     Active Substance: INSULIN ASPART
     Dosage: 5 IU, QD
     Route: 058
     Dates: start: 20170320, end: 20170408
  67. REMIVA [Concomitant]
     Dosage: 0.05 ?G/KG, PER MIN
     Route: 042
     Dates: start: 20170409, end: 20170410
  68. CYMEVENE [Concomitant]
     Active Substance: GANCICLOVIR
     Dosage: 300 MG, QD
     Route: 042
     Dates: start: 20170409, end: 20170409
  69. SPORANOX [Concomitant]
     Active Substance: ITRACONAZOLE
     Dosage: 30 ML, QD
     Route: 048
     Dates: start: 20170410, end: 20170411
  70. SPORANOX [Concomitant]
     Active Substance: ITRACONAZOLE
     Dosage: 10 ML, QD
     Route: 048
     Dates: start: 20170412, end: 20170414
  71. SEPTRIN [Concomitant]
     Active Substance: SULFAMETHOXAZOLE\TRIMETHOPRIM
     Dosage: 2 DF, QD
     Route: 048
     Dates: start: 20170418, end: 20170418
  72. VASOPRESSIN. [Concomitant]
     Active Substance: VASOPRESSIN
     Dosage: 0.03 IU/L, QD
     Route: 042
     Dates: start: 20170410, end: 20170411
  73. NALOXONE HCL [Concomitant]
     Active Substance: NALOXONE HYDROCHLORIDE
     Dosage: 0.2 MG, QD
     Route: 042
     Dates: start: 20170411, end: 20170411
  74. ALBUMIN [Concomitant]
     Active Substance: ALBUMIN HUMAN
     Dosage: 100 ML, QD
     Route: 042
     Dates: start: 20170614, end: 20170614
  75. MAGNESIUM [Concomitant]
     Active Substance: MAGNESIUM
     Dosage: 2 G, QD
     Route: 042
     Dates: start: 20170428, end: 20170428
  76. MAGNESIUM [Concomitant]
     Active Substance: MAGNESIUM
     Dosage: 2 G, QD
     Route: 042
     Dates: start: 20170529, end: 20170531
  77. MAGNESIUM [Concomitant]
     Active Substance: MAGNESIUM
     Dosage: 2 G, QD
     Route: 042
     Dates: start: 20170602, end: 20170607
  78. LASIX [Concomitant]
     Active Substance: FUROSEMIDE
     Dosage: 5 MG/HR, QD
     Route: 042
     Dates: start: 20170614, end: 20170617
  79. CODEIN PHOSPHAS [Concomitant]
     Dosage: 20 MG, QD
     Route: 048
     Dates: start: 20080807, end: 20170408
  80. TRAJENTA [Concomitant]
     Active Substance: LINAGLIPTIN
     Dosage: 5 MG, QD
     Route: 048
     Dates: start: 20161212, end: 20170408
  81. CELLCEPT [Concomitant]
     Active Substance: MYCOPHENOLATE MOFETIL\MYCOPHENOLATE MOFETIL HYDROCHLORIDE
     Dosage: 2 DF, QD
     Route: 048
     Dates: start: 20170409, end: 20170409
  82. NORPIN [Concomitant]
     Dosage: 0.05 ?G/KG, PER MIN
     Route: 042
     Dates: start: 20170417, end: 20170417
  83. KETAMINE HCL [Concomitant]
     Active Substance: KETAMINE HYDROCHLORIDE
     Dosage: 2 ?G/KG, PER MIN
     Route: 042
     Dates: start: 20170406, end: 20170410
  84. SEPTRIN [Concomitant]
     Active Substance: SULFAMETHOXAZOLE\TRIMETHOPRIM
     Dosage: 4 DF, QD
     Route: 048
     Dates: start: 20170422, end: 20170423
  85. HUMULIN R [Concomitant]
     Active Substance: INSULIN HUMAN
     Dosage: 9 IU, QD
     Route: 058
     Dates: start: 20170610, end: 20170614
  86. MIDAZOLAM. [Concomitant]
     Active Substance: MIDAZOLAM
     Dosage: 5 MG, QD
     Route: 042
     Dates: start: 20170417, end: 20170417
  87. TACROBELL [Concomitant]
     Active Substance: TACROLIMUS
     Dosage: 2.5 MG, QD
     Route: 048
     Dates: start: 20170509, end: 20170514
  88. ALBUMIN [Concomitant]
     Active Substance: ALBUMIN HUMAN
     Dosage: 100 ML, QD
     Route: 042
     Dates: start: 20170525, end: 20170525
  89. SODIUM BICARBONATE. [Concomitant]
     Active Substance: SODIUM BICARBONATE
     Dosage: 182 ML, QD
     Route: 042
     Dates: start: 20170427, end: 20170427
  90. MAGNESIUM [Concomitant]
     Active Substance: MAGNESIUM
     Dosage: 2 G, QD
     Route: 042
     Dates: start: 20170522, end: 20170522
  91. MAGNESIUM [Concomitant]
     Active Substance: MAGNESIUM
     Dosage: 2 G, QD
     Route: 042
     Dates: start: 20170525, end: 20170525
  92. PHOSTEN [Concomitant]
     Dosage: 20 ML, QD
     Route: 042
     Dates: start: 20170611, end: 20170611
  93. OPSUMIT [Suspect]
     Active Substance: MACITENTAN
     Indication: PULMONARY ARTERIAL HYPERTENSION
     Dosage: 10 MG, QD
     Route: 048
     Dates: start: 20170125, end: 20170408
  94. PAHTENSION [Concomitant]
     Active Substance: SILDENAFIL CITRATE
     Dosage: 60 MG, QD
     Route: 048
     Dates: start: 20150402, end: 20170408
  95. ALDACTONE [Concomitant]
     Active Substance: SPIRONOLACTONE
     Dosage: 50 MG, QD
     Route: 048
     Dates: start: 20160824, end: 20170408
  96. LASIX [Concomitant]
     Active Substance: FUROSEMIDE
     Dosage: 80 MG, QD
     Route: 048
     Dates: start: 20161026, end: 20170408
  97. LASIX [Concomitant]
     Active Substance: FUROSEMIDE
     Dosage: 20 MG, QD
     Route: 042
     Dates: start: 20170521, end: 20170603
  98. NEXIUM [Concomitant]
     Active Substance: ESOMEPRAZOLE MAGNESIUM
     Dosage: 40 MG, QD
     Route: 042
     Dates: start: 20170409, end: 20170502
  99. TRAJENTA [Concomitant]
     Active Substance: LINAGLIPTIN
     Dosage: 1 DF, QD
     Route: 048
     Dates: start: 20170418, end: 20170622
  100. SYNTHYROXINE [Concomitant]
     Active Substance: LEVOTHYROXINE SODIUM
     Dosage: 50 MCG, QD
     Route: 048
     Dates: start: 20170320, end: 20170612
  101. CELLCEPT [Concomitant]
     Active Substance: MYCOPHENOLATE MOFETIL\MYCOPHENOLATE MOFETIL HYDROCHLORIDE
     Dosage: 1000 UNK
     Route: 048
     Dates: start: 20170412, end: 20170602
  102. SIMULECT [Concomitant]
     Active Substance: BASILIXIMAB
     Dosage: 20 UNK
     Route: 042
     Dates: start: 20170413, end: 20170413
  103. NITROLINGUAL [Concomitant]
     Active Substance: NITROGLYCERIN
     Dosage: 5 ?G, PER MIN
     Route: 042
     Dates: start: 20170409, end: 20170410
  104. CYMEVENE [Concomitant]
     Active Substance: GANCICLOVIR
     Dosage: 300 MG, QD
     Route: 042
     Dates: start: 20170417, end: 20170423
  105. CYMEVENE [Concomitant]
     Active Substance: GANCICLOVIR
     Dosage: 600 MG, QD
     Route: 042
     Dates: start: 20170519, end: 20170601
  106. DISOLRIN [Concomitant]
     Dosage: 25 MG, QD
     Route: 042
     Dates: start: 20170501, end: 20170514
  107. SEPTRIN [Concomitant]
     Active Substance: SULFAMETHOXAZOLE\TRIMETHOPRIM
     Dosage: 2 DF, QD
     Route: 048
     Dates: start: 20170415, end: 20170415
  108. SEPTRIN [Concomitant]
     Active Substance: SULFAMETHOXAZOLE\TRIMETHOPRIM
     Dosage: 2 DF, QD
     Route: 048
     Dates: start: 20170420, end: 20170420
  109. SEPTRIN [Concomitant]
     Active Substance: SULFAMETHOXAZOLE\TRIMETHOPRIM
     Dosage: 3 DF, QD
     Route: 048
     Dates: start: 20170506, end: 20170507
  110. VITAMIN K1 [Concomitant]
     Active Substance: PHYTONADIONE
     Dosage: 10 MG, QD
     Route: 042
     Dates: start: 20170410, end: 20170410
  111. CALCIUM GLUCONATE. [Concomitant]
     Active Substance: CALCIUM GLUCONATE
     Dosage: 20 ML, QD
     Route: 042
     Dates: start: 20170420, end: 20170420
  112. CALCIUM GLUCONATE. [Concomitant]
     Active Substance: CALCIUM GLUCONATE
     Dosage: 20 ML, QD
     Route: 042
     Dates: start: 20170424, end: 20170428
  113. CALCIUM GLUCONATE. [Concomitant]
     Active Substance: CALCIUM GLUCONATE
     Dosage: 20 ML, QD
     Route: 042
     Dates: start: 20170602, end: 20170617
  114. PRECEDEX [Concomitant]
     Active Substance: DEXMEDETOMIDINE HYDROCHLORIDE
     Dosage: 0.2 ?G/KG
     Route: 042
     Dates: start: 20170413, end: 20170415
  115. TACROBELL [Concomitant]
     Active Substance: TACROLIMUS
     Dosage: 3 DF
     Route: 048
     Dates: start: 20170429, end: 20170508
  116. MAGNESIUM [Concomitant]
     Active Substance: MAGNESIUM
     Dosage: 2 G, QD
     Route: 042
     Dates: start: 20170503, end: 20170503
  117. PHOSTEN [Concomitant]
     Dosage: 20 ML, QD
     Route: 042
     Dates: start: 20170517, end: 20170518
  118. DIABEX [Concomitant]
     Active Substance: METFORMIN HYDROCHLORIDE
     Dosage: 1000 MG, QD
     Route: 048
     Dates: start: 20150205, end: 20170408
  119. LEVEMIR [Concomitant]
     Active Substance: INSULIN DETEMIR
     Dosage: 2 IU, QD
     Route: 058
     Dates: start: 20161212, end: 20170319
  120. SIMULECT [Concomitant]
     Active Substance: BASILIXIMAB
     Dosage: 20 MG, QD
     Route: 042
     Dates: start: 20170406, end: 20170409
  121. DISOLRIN [Concomitant]
     Dosage: 30 MG, QD
     Route: 042
     Dates: start: 20170409, end: 20170430
  122. DISOLRIN [Concomitant]
     Dosage: 20 MG, QD
     Route: 042
     Dates: start: 20170515, end: 20170528
  123. DILID [Concomitant]
     Dosage: 0.1 MG/HR, QD
     Route: 042
     Dates: start: 20170410, end: 20170415
  124. ALBUMIN [Concomitant]
     Active Substance: ALBUMIN HUMAN
     Dosage: 100 ML, QD
     Route: 042
     Dates: start: 20170503, end: 20170503
  125. MAGNESIUM [Concomitant]
     Active Substance: MAGNESIUM
     Dosage: 2 G, QD
     Route: 042
     Dates: start: 20170507, end: 20170510
  126. FURTMAN [Concomitant]
     Dosage: 0.1 DF, QD
     Route: 042
     Dates: start: 20170510, end: 20170513
  127. PHOSTEN [Concomitant]
     Dosage: 20 ML, QD
     Route: 042
     Dates: start: 20170606, end: 20170607

REACTIONS (12)
  - Pneumonia [Fatal]
  - Respiratory depression [Recovered/Resolved]
  - Pain [Not Recovered/Not Resolved]
  - Condition aggravated [Fatal]
  - Lung transplant [Unknown]
  - Cytomegalovirus infection [Not Recovered/Not Resolved]
  - Supraventricular tachycardia [Not Recovered/Not Resolved]
  - Atrial flutter [Not Recovered/Not Resolved]
  - Escherichia test positive [Unknown]
  - Cardiac arrest [Recovering/Resolving]
  - Delirium [Not Recovered/Not Resolved]
  - Hypotension [Recovered/Resolved]

NARRATIVE: CASE EVENT DATE: 20170409
